FAERS Safety Report 9517834 (Version 1)
Quarter: 2013Q3

REPORT INFORMATION
  Report Type: Spontaneous
  Country: FR (occurrence: None)
  Receive Date: 20130910
  Receipt Date: 20130910
  Transmission Date: 20140515
  Serious: Yes (Other)
  Sender: FDA-Public Use
  Company Number: 2013000219

PATIENT
  Age: 90 Year
  Sex: Female

DRUGS (11)
  1. ACEON (PERINDOPRIL ERBUMINE) TABLET [Suspect]
     Indication: HYPERTENSION
     Route: 048
     Dates: start: 20130625, end: 20130712
  2. METOPROLOL (METOPROLOL) [Suspect]
     Indication: PRODUCT USED FOR UNKNOWN INDICATION
     Route: 048
     Dates: end: 20130712
  3. LASILIX (FUROSEMIDE) [Suspect]
     Indication: PRODUCT USED FOR UNKNOWN INDICATION
     Route: 048
     Dates: end: 20130712
  4. INEXIUM (ESOMEPRAZOLE MAGNESIUM) [Concomitant]
  5. COLCHICINE (COLCHICINE) [Concomitant]
  6. PLAVIX (CLOPIDOGREL SULFATE) [Concomitant]
  7. CALCIPARINE (HEPARIN CALCIUM) [Concomitant]
  8. SMECTA (SMECTITE) [Concomitant]
  9. PRIMPERAN (METOCLOPRAMIDE HYDROCHLORIDE) [Concomitant]
  10. BRICANYL (TERBUTALINE SULFATE) TABLET [Concomitant]
  11. ATROVENT (IPRATROPIUM BROMIDE) TABLET [Concomitant]

REACTIONS (4)
  - Orthostatic hypotension [None]
  - Renal failure acute [None]
  - Dehydration [None]
  - Malaise [None]
